FAERS Safety Report 8935919 (Version 1)
Quarter: 2012Q4

REPORT INFORMATION
  Report Type: 
  Country: GB (occurrence: GB)
  Receive Date: 20121130
  Receipt Date: 20121130
  Transmission Date: 20130627
  Serious: Yes (Other)
  Sender: FDA-Public Use
  Company Number: GB-ASTRAZENECA-2012SE88737

PATIENT
  Age: 25932 Day
  Sex: Female

DRUGS (1)
  1. FASLODEX [Suspect]
     Indication: BREAST CANCER
     Route: 030

REACTIONS (10)
  - Second primary malignancy [Unknown]
  - Pallor [Unknown]
  - Hypoaesthesia [Unknown]
  - Pain in extremity [Unknown]
  - Vulvovaginal pruritus [Unknown]
  - Muscle spasms [Unknown]
  - Blood creatinine abnormal [Unknown]
  - Diarrhoea [Unknown]
  - Injection site pruritus [Unknown]
  - Rash pruritic [Unknown]
